FAERS Safety Report 9387740 (Version 1)
Quarter: 2013Q3

REPORT INFORMATION
  Report Type: Spontaneous
  Country: GB (occurrence: GB)
  Receive Date: 20130708
  Receipt Date: 20130708
  Transmission Date: 20140515
  Serious: Yes (Other)
  Sender: FDA-Public Use
  Company Number: GB-ROXANE LABORATORIES, INC.-2013-RO-01099RO

PATIENT
  Age: 55 Year
  Sex: Male

DRUGS (4)
  1. CLOPIDOGREL [Suspect]
     Indication: ANTIPLATELET THERAPY
     Dosage: 75 MG
  2. ASPIRIN [Suspect]
     Indication: ANTIPLATELET THERAPY
     Dosage: 100 MG
  3. PREDNISOLONE [Suspect]
     Dosage: 30 MG
  4. HEPARIN [Suspect]
     Indication: ANTIPLATELET THERAPY

REACTIONS (1)
  - Ecchymosis [Recovered/Resolved]
